FAERS Safety Report 14166231 (Version 1)
Quarter: 2017Q4

REPORT INFORMATION
  Report Type: Spontaneous
  Country: US (occurrence: US)
  Receive Date: 20171106
  Receipt Date: 20171106
  Transmission Date: 20180321
  Serious: Yes (Life-Threatening, Hospitalization, Disabling)
  Sender: FDA-Public Use
  Company Number: None

PATIENT
  Age: 42 Year
  Sex: Male
  Weight: 77.85 kg

DRUGS (1)
  1. LATUDA [Suspect]
     Active Substance: LURASIDONE HYDROCHLORIDE
     Indication: DEPRESSION
     Route: 048
     Dates: start: 20160601, end: 20160930

REACTIONS (3)
  - Glycosylated haemoglobin increased [None]
  - Insulin-requiring type 2 diabetes mellitus [None]
  - Blood glucose increased [None]

NARRATIVE: CASE EVENT DATE: 20170131
